FAERS Safety Report 8093888-7 (Version None)
Quarter: 2012Q1

REPORT INFORMATION
  Report Type: 
  Country: None (occurrence: None)
  Receive Date: 20120131
  Receipt Date: 20120123
  Transmission Date: 20120608
  Serious: Yes (Hospitalization)
  Sender: FDA-Public Use
  Company Number: US-US-EMD SERONO, INC.-7109110

PATIENT
  Sex: Male

DRUGS (3)
  1. REBIF [Suspect]
     Indication: MULTIPLE SCLEROSIS
     Route: 058
     Dates: start: 20080423
  2. STEROIDS [Suspect]
     Indication: MULTIPLE SCLEROSIS RELAPSE
  3. IBUPROFEN (ADVIL) [Concomitant]

REACTIONS (3)
  - MULTIPLE SCLEROSIS RELAPSE [None]
  - PAIN [None]
  - HYPERGLYCAEMIA [None]
